FAERS Safety Report 4433902-0 (Version None)
Quarter: 2004Q3

REPORT INFORMATION
  Report Type: 
  Country: None (occurrence: None)
  Receive Date: 20040825
  Receipt Date: 20040809
  Transmission Date: 20050211
  Serious: Yes (Hospitalization)
  Sender: FDA-Public Use
  Company Number: 2004057085

PATIENT
  Age: 69 Year
  Sex: Male
  Weight: 58.9676 kg

DRUGS (8)
  1. ZITHROMAX [Suspect]
     Indication: NASOPHARYNGITIS
     Dosage: UNKNOWN
     Route: 065
     Dates: start: 20030501
  2. PREDNISONE [Suspect]
     Indication: ILL-DEFINED DISORDER
     Dosage: UNKNOWN
     Route: 065
     Dates: start: 20030101
  3. ATENOLOL [Concomitant]
  4. AMLODIPINE BESYLATE [Concomitant]
  5. HYDROCHLOROTHIAZIDE [Concomitant]
  6. POTASSIUM (POTASSIUM) [Concomitant]
  7. ASPIRIN [Concomitant]
  8. GATIFLOXACIN [Concomitant]

REACTIONS (11)
  - BLOOD POTASSIUM ABNORMAL [None]
  - BLOOD PRESSURE INCREASED [None]
  - BODY HEIGHT DECREASED [None]
  - CARDIAC FAILURE CONGESTIVE [None]
  - CHRONIC OBSTRUCTIVE AIRWAYS DISEASE [None]
  - DYSPNOEA [None]
  - FATIGUE [None]
  - FEELING ABNORMAL [None]
  - HAIR DISORDER [None]
  - PULMONARY CONGESTION [None]
  - WEIGHT DECREASED [None]
